FAERS Safety Report 18061139 (Version 2)
Quarter: 2020Q3

REPORT INFORMATION
  Report Type: Spontaneous
  Country: US (occurrence: US)
  Receive Date: 20200723
  Receipt Date: 20200823
  Transmission Date: 20201103
  Serious: No
  Sender: FDA-Public Use
  Company Number: US-BIOGEN-2020BI00900639

PATIENT
  Sex: Female

DRUGS (2)
  1. XEOMIN [Concomitant]
     Active Substance: INCOBOTULINUMTOXINA
     Route: 065
  2. TYSABRI [Suspect]
     Active Substance: NATALIZUMAB
     Indication: PRODUCT USED FOR UNKNOWN INDICATION
     Route: 042

REACTIONS (2)
  - Muscle spasms [Unknown]
  - Inappropriate schedule of product administration [Unknown]
